FAERS Safety Report 8887801 (Version 1)
Quarter: 2012Q4

REPORT INFORMATION
  Report Type: 
  Country: US (occurrence: US)
  Receive Date: 20121106
  Receipt Date: 20121106
  Transmission Date: 20130627
  Serious: No
  Sender: FDA-Public Use
  Company Number: US-BAYER-2012-115002

PATIENT

DRUGS (1)
  1. EOVIST [Suspect]

REACTIONS (2)
  - Dizziness [None]
  - Nausea [None]
